FAERS Safety Report 23402092 (Version 2)
Quarter: 2024Q1

REPORT INFORMATION
  Report Type: Spontaneous
  Country: PT (occurrence: PT)
  Receive Date: 20240115
  Receipt Date: 20240212
  Transmission Date: 20240409
  Serious: Yes (Other)
  Sender: FDA-Public Use
  Company Number: PT-009507513-2401PRT005792

PATIENT
  Age: 69 Year
  Sex: Female

DRUGS (1)
  1. CEFTOLOZANE SULFATE\TAZOBACTAM SODIUM [Suspect]
     Active Substance: CEFTOLOZANE SULFATE\TAZOBACTAM SODIUM
     Indication: Lung abscess
     Dosage: UNK

REACTIONS (2)
  - Pulmonary cavitation [Unknown]
  - Product use in unapproved indication [Unknown]
